FAERS Safety Report 21408765 (Version 2)
Quarter: 2022Q4

REPORT INFORMATION
  Report Type: Report from Study
  Country: MX (occurrence: MX)
  Receive Date: 20221004
  Receipt Date: 20221006
  Transmission Date: 20230113
  Serious: Yes (Hospitalization)
  Sender: FDA-Public Use
  Company Number: MX-BRISTOL-MYERS SQUIBB COMPANY-2022-114340

PATIENT
  Age: 69 Year
  Sex: Female
  Weight: 43 kg

DRUGS (14)
  1. CARBOPLATIN [Suspect]
     Active Substance: CARBOPLATIN
     Indication: Non-small cell lung cancer
     Dosage: THE MOST RECENT DOSE RECEIVED ON 26-MAY-2021
     Route: 065
     Dates: start: 20210414, end: 20210414
  2. CARBOPLATIN [Suspect]
     Active Substance: CARBOPLATIN
     Route: 065
     Dates: start: 20210526, end: 20210526
  3. ETOPOSIDE [Suspect]
     Active Substance: ETOPOSIDE
     Indication: Non-small cell lung cancer
     Dosage: THE MOST RECENT DOSE RECEIVED ON 28-MAY-2021
     Route: 065
     Dates: start: 20210414, end: 20210414
  4. ETOPOSIDE [Suspect]
     Active Substance: ETOPOSIDE
     Route: 065
     Dates: start: 20210528, end: 20210528
  5. LORATADINE [Concomitant]
     Active Substance: LORATADINE
     Indication: Product used for unknown indication
     Dosage: EVERY 24 HOURS
     Route: 048
     Dates: start: 20210607
  6. LORATADINE [Concomitant]
     Active Substance: LORATADINE
     Dosage: EVERY 24 HOURS
     Route: 048
     Dates: start: 20220707
  7. BETAMETHASONE;LORATADINE [Concomitant]
     Indication: Product used for unknown indication
     Dosage: AS NEEDED, BETAMETASONE 5MG LORATADINE 0.25MG
     Route: 048
     Dates: start: 20210805
  8. MELOXICAM 7.25/ METHOCARBAMOL 215 MG [Concomitant]
     Indication: Product used for unknown indication
     Dosage: EVERY 8 HOURS
     Route: 048
     Dates: start: 20210918
  9. LOSARTAN [Concomitant]
     Active Substance: LOSARTAN
     Indication: Product used for unknown indication
     Dosage: EVERY 12 HOURS
     Route: 048
     Dates: start: 20210729
  10. DEXKETOPROFEN [Concomitant]
     Active Substance: DEXKETOPROFEN
     Indication: Product used for unknown indication
     Dosage: EVERY 24 HOURS
     Route: 048
     Dates: start: 20220102
  11. TRAMADOL [Concomitant]
     Active Substance: TRAMADOL
     Indication: Product used for unknown indication
     Dosage: EVERY 24 HOURS
     Route: 048
     Dates: start: 20220312
  12. PREDNISONE [Concomitant]
     Active Substance: PREDNISONE
     Indication: Product used for unknown indication
     Dosage: EVERY 24 HOURS
     Route: 048
     Dates: start: 20220315
  13. IPRATROPIO BROMIDE/ SALBUTAMOL [Concomitant]
     Indication: Product used for unknown indication
     Dosage: AS NEEDED
     Route: 055
     Dates: start: 20201101
  14. INDACATERO110 UG GLYCOPYRONIUM50UG [Concomitant]
     Indication: Product used for unknown indication
     Dosage: ONCE, 1 DF=INDACATERO 110UG GLYCOPYRONIUM 50UG
     Route: 048
     Dates: start: 20210401

REACTIONS (1)
  - Musculoskeletal chest pain [Recovering/Resolving]

NARRATIVE: CASE EVENT DATE: 20220928
